FAERS Safety Report 10756877 (Version 1)
Quarter: 2015Q1

REPORT INFORMATION
  Report Type: Spontaneous
  Country: US (occurrence: US)
  Receive Date: 20150203
  Receipt Date: 20150203
  Transmission Date: 20150721
  Serious: Yes (Hospitalization)
  Sender: FDA-Public Use
  Company Number: PHHY2015US010506

PATIENT
  Age: 18 Year
  Sex: Male

DRUGS (3)
  1. FLUOXETINE [Suspect]
     Active Substance: FLUOXETINE\FLUOXETINE HYDROCHLORIDE
     Indication: PRODUCT USED FOR UNKNOWN INDICATION
     Route: 065
  2. TRAZODONE [Suspect]
     Active Substance: TRAZODONE HYDROCHLORIDE
     Indication: PRODUCT USED FOR UNKNOWN INDICATION
     Route: 065
  3. NALTREXONE [Concomitant]
     Active Substance: NALTREXONE
     Indication: DRUG DEPENDENCE
     Route: 030

REACTIONS (16)
  - Chest discomfort [Recovering/Resolving]
  - Hyperhidrosis [Recovering/Resolving]
  - Dyspnoea [Recovering/Resolving]
  - Cardiomyopathy [Recovering/Resolving]
  - Hypotension [Recovering/Resolving]
  - Sinus tachycardia [Recovering/Resolving]
  - Nausea [Recovering/Resolving]
  - Cardiogenic shock [Recovering/Resolving]
  - Hypoxia [Recovering/Resolving]
  - Oxygen saturation decreased [Recovering/Resolving]
  - Pulmonary oedema [Recovering/Resolving]
  - Pyrexia [Recovering/Resolving]
  - Vomiting [Recovering/Resolving]
  - Mental status changes [Recovering/Resolving]
  - Pulseless electrical activity [Recovering/Resolving]
  - Pneumonia aspiration [Recovering/Resolving]
